FAERS Safety Report 6164437-5 (Version None)
Quarter: 2009Q2

REPORT INFORMATION
  Report Type: 
  Country: None (occurrence: None)
  Receive Date: 20090422
  Receipt Date: 20090414
  Transmission Date: 20091009
  Serious: Yes (Hospitalization, Other)
  Sender: FDA-Public Use
  Company Number: US-GENENTECH-281461

PATIENT
  Age: 6 Year
  Sex: Male

DRUGS (3)
  1. AVASTIN [Suspect]
     Indication: HEPATOBLASTOMA
     Dosage: 5 MG/KG, Q2W
     Route: 065
  2. GEMCITABINE [Concomitant]
     Indication: HEPATOBLASTOMA
     Dosage: 1000 MG/M2, Q2W
     Route: 065
  3. OXALIPLATIN [Concomitant]
     Indication: HEPATOBLASTOMA
     Dosage: 85 MG/M2, Q2W
     Route: 065

REACTIONS (1)
  - REVERSIBLE POSTERIOR LEUKOENCEPHALOPATHY SYNDROME [None]
